FAERS Safety Report 4467514-X (Version None)
Quarter: 2004Q4

REPORT INFORMATION
  Report Type: 
  Country: None (occurrence: None)
  Receive Date: 20041006
  Receipt Date: 20041001
  Transmission Date: 20050328
  Serious: Yes (Life-Threatening, Other)
  Sender: FDA-Public Use
  Company Number: US-MERCK-0410USA00305

PATIENT
  Age: 49 Year
  Sex: Female

DRUGS (3)
  1. [THERAPY UNSPECIFIED] [Concomitant]
     Route: 065
  2. CANCIDAS [Suspect]
     Route: 042
     Dates: start: 20040930
  3. DIFLUCAN [Concomitant]
     Route: 065

REACTIONS (1)
  - CARDIAC ARREST [None]
